FAERS Safety Report 9535555 (Version 2)
Quarter: 2013Q4

REPORT INFORMATION
  Report Type: Spontaneous
  Country: US (occurrence: US)
  Receive Date: 20130919
  Receipt Date: 20131001
  Transmission Date: 20140711
  Serious: Yes (Death)
  Sender: FDA-Public Use
  Company Number: US-ROCHE-1278091

PATIENT
  Age: 80 Year
  Sex: Male

DRUGS (12)
  1. LUCENTIS [Suspect]
     Indication: AGE-RELATED MACULAR DEGENERATION
     Dosage: 0.5 MG/ML
     Route: 050
     Dates: start: 20130704, end: 20130819
  2. AVASTIN [Suspect]
     Indication: AGE-RELATED MACULAR DEGENERATION
     Route: 065
  3. AVASTIN [Suspect]
     Indication: OFF LABEL USE
  4. NAPROXEN [Concomitant]
     Indication: PRODUCT USED FOR UNKNOWN INDICATION
     Route: 065
  5. AMOXICILLIN [Concomitant]
     Route: 065
  6. TAMSULOSIN [Concomitant]
     Route: 065
  7. LISINOPRIL [Concomitant]
     Route: 065
  8. ALENDRONATE [Concomitant]
     Route: 065
  9. ACTONEL [Concomitant]
     Route: 065
  10. NORCO [Concomitant]
     Dosage: 10MG/325MG
     Route: 065
  11. IBUPROFEN [Concomitant]
     Route: 065
  12. ASPIRIN [Concomitant]

REACTIONS (2)
  - Death [Fatal]
  - Off label use [Unknown]
